FAERS Safety Report 20776351 (Version 4)
Quarter: 2022Q4

REPORT INFORMATION
  Report Type: Spontaneous
  Country: US (occurrence: US)
  Receive Date: 20220502
  Receipt Date: 20221227
  Transmission Date: 20230113
  Serious: No
  Sender: FDA-Public Use
  Company Number: US-SA-SAC20220429000307

PATIENT
  Age: 60 Year
  Sex: Female

DRUGS (3)
  1. DUPIXENT [Suspect]
     Active Substance: DUPILUMAB
     Indication: Asthma
     Dosage: 300 MG, QOW
     Route: 058
     Dates: start: 20220309
  2. LISINOPRIL [Concomitant]
     Active Substance: LISINOPRIL
  3. RESCUE [Concomitant]
     Dosage: INHALER 3 OR MORE DAYS PER WEEK

REACTIONS (5)
  - Asthma exercise induced [Unknown]
  - Impaired quality of life [Unknown]
  - Gait disturbance [Unknown]
  - Therapeutic response decreased [Unknown]
  - Drug ineffective [Unknown]
